FAERS Safety Report 12238661 (Version 1)
Quarter: 2016Q2

REPORT INFORMATION
  Report Type: Spontaneous
  Country: US (occurrence: US)
  Receive Date: 20160405
  Receipt Date: 20160405
  Transmission Date: 20160815
  Serious: No
  Sender: FDA-Public Use
  Company Number: US-TEVA-607366USA

PATIENT
  Sex: Male

DRUGS (1)
  1. WARFARIN [Suspect]
     Active Substance: WARFARIN
     Route: 048

REACTIONS (2)
  - Product physical issue [Unknown]
  - Drug effect increased [Unknown]

NARRATIVE: CASE EVENT DATE: 2015
